FAERS Safety Report 13036223 (Version 3)
Quarter: 2017Q2

REPORT INFORMATION
  Report Type: Report from Study
  Country: None (occurrence: CA)
  Receive Date: 20161216
  Receipt Date: 20170504
  Transmission Date: 20170830
  Serious: Yes (Hospitalization, Other)
  Sender: FDA-Public Use
  Company Number: CA-ABBVIE-16K-028-1808237-00

PATIENT
  Sex: Female

DRUGS (2)
  1. HUMIRA [Suspect]
     Active Substance: ADALIMUMAB
     Route: 058
     Dates: start: 201703
  2. HUMIRA [Suspect]
     Active Substance: ADALIMUMAB
     Indication: CROHN^S DISEASE
     Route: 058
     Dates: start: 20130214

REACTIONS (4)
  - Volvulus [Recovered/Resolved]
  - Gallbladder enlargement [Recovered/Resolved]
  - Procedural complication [Recovered/Resolved]
  - Cholecystitis infective [Recovered/Resolved]

NARRATIVE: CASE EVENT DATE: 2014
